FAERS Safety Report 12605930 (Version 2)
Quarter: 2016Q4

REPORT INFORMATION
  Report Type: Report from Study
  Country: US (occurrence: US)
  Receive Date: 20160729
  Receipt Date: 20161125
  Transmission Date: 20170207
  Serious: Yes (Other)
  Sender: FDA-Public Use
  Company Number: US-AMGEN-USASL2016097375

PATIENT
  Age: 60 Year
  Sex: Female

DRUGS (1)
  1. ENBREL [Suspect]
     Active Substance: ETANERCEPT
     Indication: PSORIASIS
     Dosage: 50 MG, QWK
     Route: 065
     Dates: start: 2016

REACTIONS (10)
  - Abnormal clotting factor [Unknown]
  - Cardiac disorder [Unknown]
  - Feeling abnormal [Unknown]
  - Gastric disorder [Unknown]
  - Memory impairment [Unknown]
  - Anxiety [Unknown]
  - Drug administered at inappropriate site [Unknown]
  - General physical condition abnormal [Unknown]
  - Activities of daily living impaired [Unknown]
  - Impaired driving ability [Unknown]

NARRATIVE: CASE EVENT DATE: 2016
